FAERS Safety Report 10380510 (Version 1)
Quarter: 2014Q1

REPORT INFORMATION
  Report Type: Spontaneous
  Country: US (occurrence: None)
  Receive Date: 20140306
  Receipt Date: 20140306
  Transmission Date: 20141002
  Serious: Yes (Hospitalization)
  Sender: FDA-Public Use
  Company Number: 163-21880-13115453

PATIENT
  Age: 77 Year
  Sex: Female
  Weight: 72.12 kg

DRUGS (10)
  1. REVLIMID (LENALIDOMIDE) (25 MILLIGRAM, CAPSULES) [Suspect]
     Indication: PLASMA CELL MYELOMA
     Dosage: 25 MG, 21 IN 28 D, PO
     Route: 048
     Dates: start: 20131031
  2. OXYCONTIN (OXYCODONE HYDROCHLORIDE) [Concomitant]
  3. OMEPRAZONE (OMEPRAZOLE) [Concomitant]
  4. MELATONIN (MELATONIN) [Concomitant]
  5. HYDROCODONE/APAP (VICODIN0 [Concomitant]
  6. DILTIAZEM (DILTIAZEM) [Concomitant]
  7. CLONAZEPAM (CLONAZEPAM) [Concomitant]
  8. CLEARLAX POWDER (MACROGOL 3350) [Concomitant]
  9. CALCIUM (CALCIUM) [Concomitant]
  10. ALBUTEROL (SALBUTAMOL) [Concomitant]

REACTIONS (4)
  - Pneumonia [None]
  - Insomnia [None]
  - Nausea [None]
  - Vomiting [None]
